FAERS Safety Report 8943768 (Version 1)
Quarter: 2012Q4

REPORT INFORMATION
  Report Type: 
  Country: FR (occurrence: FR)
  Receive Date: 20121203
  Receipt Date: 20121203
  Transmission Date: 20130627
  Serious: Yes (Hospitalization)
  Sender: FDA-Public Use
  Company Number: FR-GLAXOSMITHKLINE-B0837556A

PATIENT
  Age: 55 Year
  Sex: Female
  Weight: 59 kg

DRUGS (5)
  1. ARIXTRA [Suspect]
     Indication: THROMBOSIS PROPHYLAXIS
     Dosage: 2.5MG Per day
     Route: 058
     Dates: start: 2012, end: 2012
  2. PARACETAMOL [Concomitant]
     Dosage: 1G Four times per day
     Route: 048
  3. INEXIUM [Concomitant]
     Dosage: 20MG Per day
     Route: 048
  4. PROFENID [Concomitant]
     Dosage: 50MG Three times per day
     Route: 048
  5. TOPALGIC ( FRANCE ) [Concomitant]
     Dosage: 50MG Three times per day
     Route: 048

REACTIONS (2)
  - Incision site haematoma [Recovered/Resolved]
  - Ecchymosis [Recovered/Resolved]
